FAERS Safety Report 21329995 (Version 1)
Quarter: 2022Q3

REPORT INFORMATION
  Report Type: Spontaneous
  Country: US (occurrence: US)
  Receive Date: 20220913
  Receipt Date: 20220913
  Transmission Date: 20221027
  Serious: Yes (Other)
  Sender: FDA-Public Use
  Company Number: US-ELI_LILLY_AND_COMPANY-US202209001931

PATIENT
  Sex: Female
  Weight: 49.9 kg

DRUGS (1)
  1. MOUNJARO [Suspect]
     Active Substance: TIRZEPATIDE
     Indication: Blood glucose decreased
     Dosage: UNK UNK, UNKNOWN
     Route: 065
     Dates: start: 20220816

REACTIONS (1)
  - Weight decreased [Unknown]
